FAERS Safety Report 11071895 (Version 2)
Quarter: 2015Q4

REPORT INFORMATION
  Report Type: Spontaneous
  Country: FR (occurrence: FR)
  Receive Date: 20150424
  Receipt Date: 20151029
  Transmission Date: 20160304
  Serious: Yes (Hospitalization)
  Sender: FDA-Public Use
  Company Number: FR-SERB-201500674

PATIENT
  Age: 73 Year
  Sex: Female

DRUGS (15)
  1. CYANOKIT [Suspect]
     Active Substance: HYDROXOCOBALAMIN
     Indication: RESPIRATORY FUME INHALATION DISORDER
     Route: 041
     Dates: start: 20150317, end: 20150317
  2. PROPOFOL. [Suspect]
     Active Substance: PROPOFOL
     Route: 042
     Dates: start: 20150317, end: 20150323
  3. AMOXICILLIN/CLAVULANATE POTASSIUM [Suspect]
     Active Substance: AMOXICILLIN\CLAVULANATE POTASSIUM
     Dates: start: 20150319
  4. REPAGLINIDE. [Concomitant]
     Active Substance: REPAGLINIDE
  5. EFFEXOR [Concomitant]
     Active Substance: VENLAFAXINE HYDROCHLORIDE
     Dates: start: 20150326
  6. NORDAZ [Concomitant]
     Active Substance: NORDAZEPAM
  7. ENOXAPARIN SODIUM. [Concomitant]
     Active Substance: ENOXAPARIN SODIUM
     Route: 058
     Dates: start: 20150317
  8. STILNOX [Concomitant]
     Active Substance: ZOLPIDEM TARTRATE
  9. LEVOPHED [Concomitant]
     Active Substance: NOREPINEPHRINE BITARTRATE
     Dates: start: 20150318
  10. SUFENTANIL CITRATE. [Suspect]
     Active Substance: SUFENTANIL CITRATE
     Dates: start: 20150317, end: 20150323
  11. BYETTA [Concomitant]
     Active Substance: EXENATIDE
  12. FUROSEMIDE. [Suspect]
     Active Substance: FUROSEMIDE
     Dates: start: 20150319
  13. MIDAZOLAM [Suspect]
     Active Substance: MIDAZOLAM\MIDAZOLAM HYDROCHLORIDE
     Dates: start: 20150317, end: 20150323
  14. OMEPRAZOLE. [Concomitant]
     Active Substance: OMEPRAZOLE
     Route: 042
  15. LANTUS [Concomitant]
     Active Substance: INSULIN GLARGINE
     Route: 058

REACTIONS (1)
  - Acute kidney injury [Recovered/Resolved]

NARRATIVE: CASE EVENT DATE: 20150320
